FAERS Safety Report 9667852 (Version 3)
Quarter: 2013Q4

REPORT INFORMATION
  Report Type: Report from Study
  Country: KE (occurrence: KE)
  Receive Date: 20131104
  Receipt Date: 20131119
  Transmission Date: 20140711
  Serious: Yes (Death, Other)
  Sender: FDA-Public Use
  Company Number: PHHY2013KE044277

PATIENT
  Age: 35 Year
  Sex: Male

DRUGS (4)
  1. GLIVEC [Suspect]
     Indication: CHRONIC MYELOID LEUKAEMIA
     Dosage: 400 MG, DAILY
     Dates: start: 20100811
  2. GLIVEC [Suspect]
     Dosage: 600 MG, DAILY
  3. GLIVEC [Suspect]
     Dosage: 800 MG, DAILY
  4. HYDROXYUREA [Suspect]
     Indication: CHRONIC MYELOID LEUKAEMIA
     Dosage: 1500 MG, DAILY

REACTIONS (8)
  - Blast crisis in myelogenous leukaemia [Fatal]
  - Chronic myeloid leukaemia [Unknown]
  - White blood cell count increased [Unknown]
  - Yellow skin [Not Recovered/Not Resolved]
  - Skin discolouration [Unknown]
  - Skin hypopigmentation [Unknown]
  - Local swelling [Not Recovered/Not Resolved]
  - Haemoglobin decreased [Unknown]
